FAERS Safety Report 5188010-0 (Version None)
Quarter: 2006Q4

REPORT INFORMATION
  Report Type: 
  Country: None (occurrence: None)
  Receive Date: 20061214
  Receipt Date: 20061214
  Transmission Date: 20070319
  Serious: Yes (Death)
  Sender: FDA-Public Use
  Company Number: None

PATIENT
  Age: 14 Year
  Sex: Male
  Weight: 63 kg

DRUGS (3)
  1. NAFCILLIN SODIUM [Suspect]
     Indication: PROPHYLAXIS
     Dosage: 1GM EVERY 6 HOURS IV
     Route: 042
     Dates: start: 20060730, end: 20060730
  2. NAFCILLIN SODIUM [Suspect]
     Indication: WOUND TREATMENT
     Dosage: 1GM EVERY 6 HOURS IV
     Route: 042
     Dates: start: 20060730, end: 20060730
  3. CIPROFLOXACIN [Concomitant]

REACTIONS (7)
  - ACUTE RESPIRATORY DISTRESS SYNDROME [None]
  - ANAPHYLACTIC REACTION [None]
  - CARDIO-RESPIRATORY ARREST [None]
  - CEREBROVASCULAR DISORDER [None]
  - HAEMOCONCENTRATION [None]
  - LUNG INFILTRATION [None]
  - PUPILLARY REFLEX IMPAIRED [None]
